FAERS Safety Report 9364142 (Version 1)
Quarter: 2013Q2

REPORT INFORMATION
  Report Type: Spontaneous
  Country: US (occurrence: None)
  Receive Date: 20130619
  Receipt Date: 20130619
  Transmission Date: 20140414
  Serious: Yes (Other)
  Sender: FDA-Public Use
  Company Number: USW201306-000064

PATIENT
  Age: 58 Year
  Sex: Female

DRUGS (1)
  1. APOKYN (APOMORPHINE HYDROCHLORIDE) (APOMORPHINE HYDROCHLORIDE) [Suspect]
     Indication: PARKINSON^S DISEASE
     Dosage: 0.3 ML AS NEEDED, SUBCUTANEOUS
     Route: 058
     Dates: start: 20130328, end: 20130530

REACTIONS (3)
  - Fall [None]
  - Laceration [None]
  - Head injury [None]
